FAERS Safety Report 9146194 (Version 1)
Quarter: 2013Q1

REPORT INFORMATION
  Report Type: Spontaneous
  Country: US (occurrence: None)
  Receive Date: 20130227
  Receipt Date: 20130227
  Transmission Date: 20140127
  Serious: Yes (Hospitalization)
  Sender: FDA-Public Use
  Company Number: None

PATIENT
  Sex: Male

DRUGS (1)
  1. RIBAVIRIN [Suspect]
     Indication: HEPATITIS C
     Dosage: 400MG Q12H ORAL
     Route: 048
     Dates: start: 20121012, end: 20121026

REACTIONS (3)
  - Fluid retention [None]
  - Malaise [None]
  - Condition aggravated [None]
